FAERS Safety Report 6388512-5 (Version None)
Quarter: 2009Q4

REPORT INFORMATION
  Report Type: 
  Country: None (occurrence: None)
  Receive Date: 20091005
  Receipt Date: 20090929
  Transmission Date: 20100525
  Serious: Yes (Hospitalization)
  Sender: FDA-Public Use
  Company Number: B0595452A

PATIENT
  Sex: Female

DRUGS (4)
  1. DEROXAT [Suspect]
     Indication: SUICIDE ATTEMPT
     Dosage: 280MG SINGLE DOSE
     Route: 048
     Dates: start: 20090917, end: 20090917
  2. THERALENE (ALIMEMAZINE) [Suspect]
     Indication: SUICIDE ATTEMPT
     Dosage: 250MG SINGLE DOSE
     Route: 048
     Dates: start: 20090917, end: 20090917
  3. SERESTA [Suspect]
     Indication: SUICIDE ATTEMPT
     Dosage: 3G SINGLE DOSE
     Route: 048
     Dates: start: 20090917, end: 20090917
  4. HEPT-A-MYL [Suspect]
     Indication: SUICIDE ATTEMPT
     Dosage: 3750MG SINGLE DOSE
     Route: 048
     Dates: start: 20080917, end: 20080917

REACTIONS (7)
  - COMA [None]
  - CONFUSIONAL STATE [None]
  - HYPOTENSION [None]
  - HYPOVENTILATION [None]
  - MIOSIS [None]
  - MULTIPLE DRUG OVERDOSE INTENTIONAL [None]
  - SUICIDE ATTEMPT [None]
